FAERS Safety Report 11051476 (Version 1)
Quarter: 2015Q2

REPORT INFORMATION
  Report Type: Spontaneous
  Country: US (occurrence: None)
  Receive Date: 20150420
  Receipt Date: 20150420
  Transmission Date: 20150821
  Serious: Yes (Hospitalization)
  Sender: FDA-Public Use
  Company Number: None

PATIENT
  Age: 64 Year
  Sex: Male
  Weight: 124.4 kg

DRUGS (2)
  1. FUROSEMIDE. [Suspect]
     Active Substance: FUROSEMIDE
     Indication: CARDIAC FAILURE CONGESTIVE
     Dosage: 1/2 TAB BID PO
     Route: 048
     Dates: start: 20010123, end: 20141217
  2. SIMVASTATIN. [Suspect]
     Active Substance: SIMVASTATIN
     Indication: HYPERLIPIDAEMIA
     Dosage: 1/2 TAB HS PO
     Route: 048
     Dates: start: 20091208, end: 20141214

REACTIONS (1)
  - Pancreatitis relapsing [None]

NARRATIVE: CASE EVENT DATE: 20141209
